FAERS Safety Report 6425933-6 (Version None)
Quarter: 2009Q4

REPORT INFORMATION
  Report Type: 
  Country: None (occurrence: None)
  Receive Date: 20091103
  Receipt Date: 20091103
  Transmission Date: 20100525
  Serious: No
  Sender: FDA-Public Use
  Company Number: None

PATIENT
  Sex: Male

DRUGS (1)
  1. PAXIL [Suspect]
     Dosage: 1 TAB TWICE DAILY, PO
     Route: 048
     Dates: start: 19961201, end: 19981201

REACTIONS (3)
  - AGGRESSION [None]
  - PARAESTHESIA [None]
  - PHOTOPSIA [None]
